FAERS Safety Report 7498903-7 (Version None)
Quarter: 2011Q2

REPORT INFORMATION
  Report Type: 
  Country: None (occurrence: None)
  Receive Date: 20110516
  Receipt Date: 20110503
  Transmission Date: 20111010
  Serious: Yes (Hospitalization)
  Sender: FDA-Public Use
  Company Number: 2011MA004889

PATIENT
  Age: 11 Year
  Sex: Male

DRUGS (3)
  1. CLONIDINE HCL [Suspect]
     Indication: ATTENTION DEFICIT/HYPERACTIVITY DISORDER
     Dosage: 0.2 MG, BID
  2. ARIPIPRAZOLE [Concomitant]
  3. METHYLPHENIDATE LITHIUM [Concomitant]

REACTIONS (4)
  - AFFECT LABILITY [None]
  - AGGRESSION [None]
  - DYSTONIA [None]
  - SELF INJURIOUS BEHAVIOUR [None]
